FAERS Safety Report 23272586 (Version 1)
Quarter: 2023Q4

REPORT INFORMATION
  Report Type: Spontaneous
  Country: US (occurrence: None)
  Receive Date: 20231206
  Receipt Date: 20231206
  Transmission Date: 20240110
  Serious: Yes (Other)
  Sender: FDA-Public Use
  Company Number: None

PATIENT
  Age: 70 Year
  Sex: Female
  Weight: 60.75 kg

DRUGS (9)
  1. CIMZIA [Suspect]
     Active Substance: CERTOLIZUMAB PEGOL
     Indication: Ankylosing spondylitis
     Dates: start: 20220208, end: 20220311
  2. MELOXICAM [Concomitant]
     Active Substance: MELOXICAM
  3. GABAPENTIN [Concomitant]
     Active Substance: GABAPENTIN
  4. PANTOPRAZOLE [Concomitant]
     Active Substance: PANTOPRAZOLE
  5. ESTRADIOL [Concomitant]
     Active Substance: ESTRADIOL
  6. ZYRTEC [Concomitant]
     Active Substance: CETIRIZINE HYDROCHLORIDE
  7. Vitamin A-D-K [Concomitant]
  8. METAMUCIL [Concomitant]
     Active Substance: PLANTAGO SEED
  9. Nail/hair vitamin [Concomitant]

REACTIONS (5)
  - Fatigue [None]
  - Therapy cessation [None]
  - Bronchitis [None]
  - Drug ineffective [None]
  - Mycobacterium avium complex infection [None]

NARRATIVE: CASE EVENT DATE: 20220424
